FAERS Safety Report 4620317-5 (Version None)
Quarter: 2005Q1

REPORT INFORMATION
  Report Type: 
  Country: None (occurrence: None)
  Receive Date: 20050324
  Receipt Date: 20050223
  Transmission Date: 20050727
  Serious: Yes (Hospitalization, Other)
  Sender: FDA-Public Use
  Company Number: 2005036927

PATIENT
  Age: 77 Year
  Sex: Female
  Weight: 69.4003 kg

DRUGS (5)
  1. BEXTRA [Suspect]
     Indication: PAIN
     Dosage: 10 MG (10 MG, 1 IN 1 D), ORAL
     Route: 048
     Dates: start: 20040601, end: 20050118
  2. CELEBREX [Suspect]
     Indication: PAIN IN EXTREMITY
     Dosage: 200 MG (200 MG, 1 IN 1 D), ORAL
     Route: 048
     Dates: start: 20020101, end: 20030801
  3. OLMESARTAN MEDOXOMIL (OLMESARTAN MEDOXOMIL) [Concomitant]
  4. ALL OTHER THERAPEUTIC PRODUCTS (ALL OTHER THERAPEUTIC PRODUCTS) [Concomitant]
  5. ASPIRIN [Concomitant]

REACTIONS (10)
  - ARTHRALGIA [None]
  - BASAL CELL CARCINOMA [None]
  - DISLOCATION OF VERTEBRA [None]
  - DRUG INEFFECTIVE [None]
  - HYPOAESTHESIA [None]
  - INTERVERTEBRAL DISC PROTRUSION [None]
  - NERVE COMPRESSION [None]
  - PARAESTHESIA [None]
  - SPINAL COLUMN STENOSIS [None]
  - SPONDYLITIS [None]
